FAERS Safety Report 5959002-6 (Version None)
Quarter: 2008Q4

REPORT INFORMATION
  Report Type: 
  Country: None (occurrence: None)
  Receive Date: 20081113
  Receipt Date: 20080917
  Transmission Date: 20090506
  Serious: Yes (Hospitalization)
  Sender: FDA-Public Use
  Company Number: ALK_00648_2008

PATIENT
  Sex: Female
  Weight: 45.3597 kg

DRUGS (5)
  1. VIVITROL [Suspect]
     Indication: ALCOHOLISM
     Dosage: (380 MG 1X/MONTH INTRAMUSCULAR)
     Route: 030
     Dates: start: 20080707
  2. SUBOXONE [Suspect]
     Indication: DRUG USE FOR UNKNOWN INDICATION
     Dosage: (DF QD)
     Dates: start: 20080401, end: 20080801
  3. AMBIEN [Concomitant]
  4. ATIVAN [Concomitant]
  5. EFFEXOR XR [Concomitant]

REACTIONS (17)
  - ALCOHOL USE [None]
  - ALCOHOL WITHDRAWAL SYNDROME [None]
  - ALCOHOLISM [None]
  - DRUG INEFFECTIVE [None]
  - DRUG INTERACTION [None]
  - FEELING ABNORMAL [None]
  - IMPAIRED WORK ABILITY [None]
  - INJECTION SITE DISCOMFORT [None]
  - INJECTION SITE PAIN [None]
  - MALAISE [None]
  - MUSCLE SPASMS [None]
  - NAUSEA [None]
  - PAIN IN EXTREMITY [None]
  - PRODUCT QUALITY ISSUE [None]
  - RESTLESSNESS [None]
  - SOMNOLENCE [None]
  - VOMITING [None]
